FAERS Safety Report 7685223-0 (Version None)
Quarter: 2011Q3

REPORT INFORMATION
  Report Type: 
  Country: None (occurrence: None)
  Receive Date: 20110811
  Receipt Date: 20110727
  Transmission Date: 20111222
  Serious: Yes (Life-Threatening, Hospitalization)
  Sender: FDA-Public Use
  Company Number: 2011AP001606

PATIENT
  Age: 91 Year
  Sex: Female

DRUGS (5)
  1. RAMIPRIL [Suspect]
     Indication: CARDIAC FAILURE CONGESTIVE
     Dosage: 10 MG, PO
     Route: 048
  2. BENDROFLUMETHIAZIDE (BENDROFLUMETHIAZIDE) [Suspect]
     Indication: CARDIAC FAILURE CONGESTIVE
     Dosage: 2.5 MG, PO
     Route: 048
  3. TRIMETHOPRIM [Suspect]
     Indication: URINARY TRACT INFECTION
     Dosage: 200 MG, BID, PO
     Route: 048
     Dates: start: 20101229, end: 20110101
  4. CARVEDILOL [Concomitant]
  5. WARFARIN SODIUM [Concomitant]

REACTIONS (7)
  - HYPONATRAEMIA [None]
  - CONFUSIONAL STATE [None]
  - URINARY TRACT INFECTION [None]
  - BLOOD POTASSIUM DECREASED [None]
  - BLOOD OSMOLARITY DECREASED [None]
  - BLOOD CORTISOL INCREASED [None]
  - DRUG INTERACTION [None]
